FAERS Safety Report 6414078-7 (Version None)
Quarter: 2009Q4

REPORT INFORMATION
  Report Type: 
  Country: None (occurrence: None)
  Receive Date: 20091026
  Receipt Date: 20091015
  Transmission Date: 20100525
  Serious: Yes (Other)
  Sender: FDA-Public Use
  Company Number: AU-JNJFOC-20091005287

PATIENT
  Age: 44 Year
  Sex: Male

DRUGS (1)
  1. REMICADE [Suspect]
     Indication: PSORIASIS
     Route: 042
     Dates: start: 20080827

REACTIONS (3)
  - BASAL CELL CARCINOMA [None]
  - SQUAMOUS CELL CARCINOMA [None]
  - THERAPEUTIC RESPONSE DECREASED [None]
